FAERS Safety Report 9606613 (Version 2)
Quarter: 2013Q4

REPORT INFORMATION
  Report Type: Spontaneous
  Country: US (occurrence: US)
  Receive Date: 20131008
  Receipt Date: 20131008
  Transmission Date: 20140711
  Serious: No
  Sender: FDA-Public Use
  Company Number: US-AMGEN-USASP2013054461

PATIENT
  Age: 53 Year
  Sex: Female
  Weight: 163.2 kg

DRUGS (12)
  1. PROLIA [Suspect]
     Indication: OSTEOPOROSIS POSTMENOPAUSAL
     Dosage: 1 DF, ONE TIME DOSE
     Dates: start: 201307, end: 201307
  2. LASIX                              /00032601/ [Concomitant]
     Dosage: 20 MG, QD
     Route: 048
  3. LACTULOSE [Concomitant]
     Dosage: 10GM/15ML AS NEEDED
  4. ZOLPIDEM TARTRATE [Concomitant]
     Dosage: 10 MG, AS NECESSARY
     Route: 048
  5. KLOR CON [Concomitant]
     Dosage: 10 MEQ, QD
     Route: 048
  6. PROPRANOLOL HCL [Concomitant]
     Dosage: 10 MG, BID
     Route: 048
  7. CITALOPRAM HYDROBROMIDE [Concomitant]
     Dosage: 40 MG, QD 1/2 TABLET
     Route: 048
  8. SOMA [Concomitant]
     Dosage: 350 MG, TID AS NEEDED
     Route: 048
  9. HYDROCODONE / IBUPROFEN [Concomitant]
     Dosage: 7.5/200 MG 1 DF, AS NECESSARY EVERY 8 HRS
     Route: 048
  10. FORTEO [Concomitant]
  11. BISPHOSPHONATES [Concomitant]
     Route: 042
  12. CIPRO                              /00697201/ [Concomitant]
     Dosage: 500 MG, Q12H

REACTIONS (23)
  - Influenza like illness [Recovering/Resolving]
  - Paraesthesia [Recovering/Resolving]
  - Hyperhidrosis [Recovering/Resolving]
  - Pain in jaw [Recovering/Resolving]
  - Hot flush [Recovered/Resolved]
  - Stomatitis [Recovering/Resolving]
  - Blister [Recovering/Resolving]
  - Dehydration [Recovering/Resolving]
  - Decreased appetite [Unknown]
  - Hypersomnia [Unknown]
  - Aphthous stomatitis [Unknown]
  - Feeling abnormal [Unknown]
  - Neuropathy peripheral [Unknown]
  - Muscle spasms [Unknown]
  - Lip pain [Recovered/Resolved]
  - Dyspnoea at rest [Unknown]
  - Feeling hot [Unknown]
  - Pyrexia [Unknown]
  - Malaise [Unknown]
  - Anxiety [Unknown]
  - Pain [Unknown]
  - Hypoaesthesia [Unknown]
  - Fatigue [Recovering/Resolving]
